FAERS Safety Report 16500112 (Version 2)
Quarter: 2019Q3

REPORT INFORMATION
  Report Type: Spontaneous
  Country: RU (occurrence: RU)
  Receive Date: 20190701
  Receipt Date: 20190912
  Transmission Date: 20191004
  Serious: Yes (Other)
  Sender: FDA-Public Use
  Company Number: PHHY2019RU149270

PATIENT
  Sex: Male

DRUGS (1)
  1. EXFORGE [Suspect]
     Active Substance: AMLODIPINE BESYLATE\VALSARTAN
     Indication: CARDIAC DISORDER
     Dosage: 1 DF, QHS BEFORE GOING TO BED
     Route: 048

REACTIONS (5)
  - Product packaging issue [Unknown]
  - Malaise [Unknown]
  - Blood pressure increased [Recovered/Resolved]
  - General physical health deterioration [Unknown]
  - Drug ineffective [Unknown]
